FAERS Safety Report 19761211 (Version 1)
Quarter: 2021Q3

REPORT INFORMATION
  Report Type: Spontaneous
  Country: US (occurrence: US)
  Receive Date: 20210830
  Receipt Date: 20210830
  Transmission Date: 20211014
  Serious: Yes (Hospitalization)
  Sender: FDA-Public Use
  Company Number: US-ORION CORPORATION ORION PHARMA-ENTC2021-0188

PATIENT
  Sex: Male

DRUGS (1)
  1. LEVODOPA?CARBIDOPA?ENTACAPONE (TRADE NAME UNKNOWN) [Suspect]
     Active Substance: CARBIDOPA\ENTACAPONE\LEVODOPA
     Indication: PRODUCT USED FOR UNKNOWN INDICATION
     Dosage: EVERY 4 HOURS
     Route: 065

REACTIONS (19)
  - Respiratory rate increased [Unknown]
  - Hyperhidrosis [Unknown]
  - Consciousness fluctuating [Unknown]
  - Tongue discomfort [Unknown]
  - Dry mouth [Unknown]
  - Vertigo [Unknown]
  - Tremor [Unknown]
  - Tension headache [Unknown]
  - Patella fracture [Unknown]
  - Abdominal pain upper [Unknown]
  - Condition aggravated [Unknown]
  - Head injury [Unknown]
  - Hypertension [Unknown]
  - Dyspepsia [Unknown]
  - Oral discomfort [Unknown]
  - Fall [Unknown]
  - Micturition urgency [Unknown]
  - Dystonia [Unknown]
  - Trismus [Unknown]
